FAERS Safety Report 12210363 (Version 3)
Quarter: 2016Q1

REPORT INFORMATION
  Report Type: Report from Study
  Country: US (occurrence: US)
  Receive Date: 20160325
  Receipt Date: 20160329
  Transmission Date: 20160526
  Serious: Yes (Hospitalization, Other)
  Sender: FDA-Public Use
  Company Number: US-MDT-ADR-2016-00198

PATIENT
  Age: 50 Year
  Sex: Male

DRUGS (5)
  1. NORCO [Suspect]
     Active Substance: ACETAMINOPHEN\HYDROCODONE BITARTRATE
     Route: 048
  2. SUFENTA [Suspect]
     Active Substance: SUFENTANIL CITRATE
     Dosage: 135.03 MCG/DAY
     Route: 037
  3. BACLOFEN. [Suspect]
     Active Substance: BACLOFEN
     Dosage: 1,011.4 MCG/DAY
     Route: 037
  4. BUPIVACAINE [Suspect]
     Active Substance: BUPIVACAINE
     Dosage: 11.253 MG/DAY
     Route: 037
  5. PERCOCET [Suspect]
     Active Substance: ACETAMINOPHEN\OXYCODONE HYDROCHLORIDE
     Route: 048

REACTIONS (5)
  - Staphylococcus test positive [None]
  - Pyrexia [None]
  - Medical device site infection [None]
  - Medical device site swelling [None]
  - Medical device site erythema [None]
